FAERS Safety Report 4352130-0 (Version None)
Quarter: 2004Q2

REPORT INFORMATION
  Report Type: 
  Country: None (occurrence: None)
  Receive Date: 20040503
  Receipt Date: 20040503
  Transmission Date: 20050107
  Serious: Yes (Other)
  Sender: FDA-Public Use
  Company Number: None

PATIENT
  Age: 45 Year
  Sex: Male

DRUGS (2)
  1. LISINOPRIL [Suspect]
     Dosage: TAB
  2. LIPITOR [Suspect]
     Dosage: TAB

REACTIONS (1)
  - MEDICATION ERROR [None]
